FAERS Safety Report 15478374 (Version 2)
Quarter: 2019Q1

REPORT INFORMATION
  Report Type: Report from Study
  Country: US (occurrence: US)
  Receive Date: 20181009
  Receipt Date: 20190128
  Transmission Date: 20190417
  Serious: No
  Sender: FDA-Public Use
  Company Number: US-SA-2018SA277321

PATIENT
  Age: 61 Year
  Sex: Male

DRUGS (6)
  1. DOXEPIN [Concomitant]
     Active Substance: DOXEPIN
  2. DUPILUMAB [Suspect]
     Active Substance: DUPILUMAB
     Indication: ASTHMA
  3. EUCRISA [Concomitant]
     Active Substance: CRISABOROLE
     Dosage: UNK UNK, BID
  4. DUPILUMAB [Suspect]
     Active Substance: DUPILUMAB
     Indication: NEURODERMATITIS
     Dosage: 600 MG, 1X
     Route: 058
     Dates: start: 201810, end: 201810
  5. ELIDEL [Concomitant]
     Active Substance: PIMECROLIMUS
  6. DUPILUMAB [Suspect]
     Active Substance: DUPILUMAB
     Indication: DERMATITIS ATOPIC
     Dosage: 300 MG, QOW
     Route: 058

REACTIONS (6)
  - Drug ineffective [Unknown]
  - Knee operation [Recovered/Resolved]
  - Somnolence [Not Recovered/Not Resolved]
  - Rash generalised [Not Recovered/Not Resolved]
  - Product use issue [Unknown]
  - Off label use [Unknown]

NARRATIVE: CASE EVENT DATE: 2018
